FAERS Safety Report 8799881 (Version 1)
Quarter: 2012Q4

REPORT INFORMATION
  Report Type: Spontaneous
  Country: US (occurrence: None)
  Receive Date: 20120918
  Receipt Date: 20120918
  Transmission Date: 20130627
  Serious: No
  Sender: FDA-Public Use
  Company Number: None

PATIENT
  Age: 33 Year
  Sex: Male
  Weight: 99 kg

DRUGS (2)
  1. MIDAZOLAM [Suspect]
     Route: 042
     Dates: start: 20120621, end: 20120621
  2. PROPOFOL [Suspect]
     Route: 042
     Dates: start: 20120621, end: 20120621

REACTIONS (3)
  - Increased upper airway secretion [None]
  - Cough [None]
  - Oxygen saturation decreased [None]
